FAERS Safety Report 18545114 (Version 14)
Quarter: 2025Q2

REPORT INFORMATION
  Report Type: Spontaneous
  Country: US (occurrence: US)
  Receive Date: 20201125
  Receipt Date: 20250424
  Transmission Date: 20250716
  Serious: Yes (Disabling, Other)
  Sender: PFIZER
  Company Number: US-PFIZER INC-2019308618

PATIENT
  Age: 74 Year
  Sex: Female
  Weight: 59.42 kg

DRUGS (3)
  1. PREMARIN [Suspect]
     Active Substance: ESTROGENS, CONJUGATED
     Indication: Scar
     Route: 067
     Dates: start: 2020
  2. PREMARIN [Suspect]
     Active Substance: ESTROGENS, CONJUGATED
     Indication: Skin lesion
     Route: 067
     Dates: start: 202012
  3. PREMARIN [Suspect]
     Active Substance: ESTROGENS, CONJUGATED
     Indication: Discomfort
     Dosage: THINKS 2.0 THINKS TWICE A WEEK
     Route: 067

REACTIONS (9)
  - Brain neoplasm [Not Recovered/Not Resolved]
  - Malignant neoplasm progression [Not Recovered/Not Resolved]
  - Cardiac disorder [Unknown]
  - Headache [Unknown]
  - Thyroid disorder [Unknown]
  - Malaise [Unknown]
  - Intentional product misuse [Unknown]
  - Off label use [Unknown]
  - Drug effective for unapproved indication [Unknown]

NARRATIVE: CASE EVENT DATE: 20240101
